FAERS Safety Report 21172125 (Version 1)
Quarter: 2022Q3

REPORT INFORMATION
  Report Type: Spontaneous
  Country: US (occurrence: None)
  Receive Date: 20220803
  Receipt Date: 20220803
  Transmission Date: 20221027
  Serious: Yes (Death)
  Sender: FDA-Public Use
  Company Number: None

PATIENT
  Age: 47 Year
  Sex: Female

DRUGS (1)
  1. MILRINONE [Suspect]
     Active Substance: MILRINONE
     Indication: Cardiac disorder
     Dosage: FREQUENCY : DAILY;?OTHER ROUTE : BAG/TUBE TO HEART PUMP;?
     Route: 050
     Dates: start: 20130101

REACTIONS (3)
  - Expired product administered [None]
  - Pain [None]
  - Depressed mood [None]

NARRATIVE: CASE EVENT DATE: 20130501
